FAERS Safety Report 11183581 (Version 5)
Quarter: 2015Q4

REPORT INFORMATION
  Report Type: Report from Study
  Country: CA (occurrence: CA)
  Receive Date: 20150612
  Receipt Date: 20151116
  Transmission Date: 20160304
  Serious: Yes (Other)
  Sender: FDA-Public Use
  Company Number: CA-ROCHE-1140066

PATIENT
  Age: 59 Year
  Sex: Female
  Weight: 126 kg

DRUGS (7)
  1. VITAMIN C [Concomitant]
     Active Substance: ASCORBIC ACID
  2. MELOXICAM. [Concomitant]
     Active Substance: MELOXICAM
  3. ACTEMRA [Suspect]
     Active Substance: TOCILIZUMAB
     Indication: RHEUMATOID ARTHRITIS
     Route: 042
     Dates: start: 20120316
  4. FOLIC ACID. [Concomitant]
     Active Substance: FOLIC ACID
  5. ACTEMRA [Suspect]
     Active Substance: TOCILIZUMAB
     Route: 042
     Dates: start: 20130713
  6. ACTEMRA [Suspect]
     Active Substance: TOCILIZUMAB
     Dosage: DOSE INTERUPTED
     Route: 042
     Dates: start: 20141215, end: 20150309
  7. METHOTREXATE [Concomitant]
     Active Substance: METHOTREXATE
     Route: 048

REACTIONS (14)
  - C-reactive protein increased [Recovering/Resolving]
  - Erythema [Unknown]
  - Haemoglobin decreased [Unknown]
  - Blood creatinine decreased [Unknown]
  - Fibroadenoma of breast [Unknown]
  - Mastitis [Recovered/Resolved]
  - Peripheral swelling [Unknown]
  - Breast cancer [Recovered/Resolved]
  - Laceration [Unknown]
  - Contusion [Unknown]
  - Glomerular filtration rate decreased [Unknown]
  - Weight increased [Unknown]
  - Haematocrit decreased [Unknown]
  - Red blood cell count decreased [Unknown]

NARRATIVE: CASE EVENT DATE: 201509
